FAERS Safety Report 16876955 (Version 2)
Quarter: 2019Q4

REPORT INFORMATION
  Report Type: Report from Study
  Country: US (occurrence: US)
  Receive Date: 20191002
  Receipt Date: 20191204
  Transmission Date: 20200122
  Serious: Yes (Other)
  Sender: FDA-Public Use
  Company Number: PHEH2019US039919

PATIENT
  Sex: Male

DRUGS (4)
  1. ZORTRESS [Suspect]
     Active Substance: EVEROLIMUS
     Indication: LUNG TRANSPLANT
     Route: 048
  2. TOPROL XL [Concomitant]
     Active Substance: METOPROLOL SUCCINATE
     Indication: PRODUCT USED FOR UNKNOWN INDICATION
     Dosage: 25 MG
     Route: 065
  3. CLOPIDOGREL [Concomitant]
     Active Substance: CLOPIDOGREL BISULFATE
     Indication: PRODUCT USED FOR UNKNOWN INDICATION
     Route: 065
  4. CALCIUM [Concomitant]
     Active Substance: CALCIUM
     Indication: PRODUCT USED FOR UNKNOWN INDICATION
     Route: 065

REACTIONS (6)
  - Blindness unilateral [Unknown]
  - Oedema [Unknown]
  - Lethargy [Unknown]
  - Visual field defect [Unknown]
  - Renal impairment [Unknown]
  - Diplopia [Unknown]
